FAERS Safety Report 17755271 (Version 2)
Quarter: 2020Q4

REPORT INFORMATION
  Report Type: Spontaneous
  Country: US (occurrence: US)
  Receive Date: 20200507
  Receipt Date: 20201002
  Transmission Date: 20210113
  Serious: Yes (Other)
  Sender: FDA-Public Use
  Company Number: US-PFIZER INC-2020182495

PATIENT
  Age: 17 Year
  Sex: Female

DRUGS (1)
  1. ZOLOFT [Suspect]
     Active Substance: SERTRALINE HYDROCHLORIDE
     Indication: DEPRESSION
     Dosage: 50 MG, 1X/DAY (QD (ONCE A DAY))
     Route: 048
     Dates: start: 20200129, end: 20200313

REACTIONS (11)
  - Feeling abnormal [Unknown]
  - Gait disturbance [Unknown]
  - Migraine [Unknown]
  - Dizziness [Unknown]
  - Nausea [Unknown]
  - Loss of consciousness [Unknown]
  - Tachycardia [Recovered/Resolved]
  - Overdose [Recovered/Resolved]
  - Head injury [Unknown]
  - Headache [Recovered/Resolved]
  - Vomiting [Unknown]

NARRATIVE: CASE EVENT DATE: 20200312
